FAERS Safety Report 7943654-5 (Version None)
Quarter: 2011Q4

REPORT INFORMATION
  Report Type: 
  Country: None (occurrence: None)
  Receive Date: 20111128
  Receipt Date: 20111121
  Transmission Date: 20120403
  Serious: Yes (Death, Hospitalization, Other)
  Sender: FDA-Public Use
  Company Number: US-TEVA-310507USA

PATIENT
  Age: 50 Year
  Sex: Female

DRUGS (4)
  1. BUPROPION HYDROCHLORIDE [Suspect]
  2. METOPROLOL TARTRATE [Suspect]
  3. INSULIN [Interacting]
  4. FAT EMULSIONS [Interacting]

REACTIONS (5)
  - CARDIAC ARREST [None]
  - MULTI-ORGAN FAILURE [None]
  - DRUG INTERACTION [None]
  - CARDIOGENIC SHOCK [None]
  - OVERDOSE [None]
